FAERS Safety Report 23699165 (Version 1)
Quarter: 2024Q2

REPORT INFORMATION
  Report Type: Spontaneous
  Country: US (occurrence: US)
  Receive Date: 20240402
  Receipt Date: 20240402
  Transmission Date: 20240716
  Serious: Yes (Other)
  Sender: FDA-Public Use
  Company Number: US-Stemline Therapeutics, Inc.-2024ST001970

PATIENT
  Age: 68 Year
  Sex: Female

DRUGS (1)
  1. ORSERDU [Suspect]
     Active Substance: ELACESTRANT
     Indication: Product used for unknown indication
     Route: 048
     Dates: start: 20240222

REACTIONS (4)
  - Facial paralysis [Recovered/Resolved]
  - Brain neoplasm malignant [Unknown]
  - Fatigue [Unknown]
  - Decreased appetite [Unknown]
